FAERS Safety Report 7506974-4 (Version None)
Quarter: 2011Q2

REPORT INFORMATION
  Report Type: 
  Country: None (occurrence: None)
  Receive Date: 20110526
  Receipt Date: 20110516
  Transmission Date: 20111010
  Serious: Yes (Death, Hospitalization, Other)
  Sender: FDA-Public Use
  Company Number: PHHY2011DK42211

PATIENT
  Sex: Male
  Weight: 81 kg

DRUGS (12)
  1. ANAGRELIDE HCL [Suspect]
     Dosage: 0.5 MG, 4X/DAY:QID
     Route: 048
     Dates: start: 20090602, end: 20090921
  2. DANAZOL [Concomitant]
     Indication: ANAEMIA
     Dosage: 200 MG, 2X/DAY:BID
     Route: 048
     Dates: start: 20091001, end: 20091110
  3. ASPIRIN AND DIPYRIDAMOLE [Suspect]
     Indication: ESSENTIAL THROMBOCYTHAEMIA
     Dosage: 1 DF, 1X/DAY:QD
     Route: 048
     Dates: start: 20050301, end: 20090921
  4. ACETYLSALICYLIC ACID SRT [Suspect]
     Dosage: 150 MG, 1X/DAY:QD
     Route: 048
     Dates: start: 20030127, end: 20030301
  5. ANAGRELIDE HCL [Suspect]
     Dosage: 0.5 MG, 2X/DAY:BID
     Route: 048
     Dates: start: 20091109, end: 20091117
  6. HYDROXYUREA [Suspect]
     Dosage: 500 MG, 1X/DAY:QD
     Route: 048
     Dates: start: 20090921, end: 20090922
  7. ANAGRELIDE HCL [Suspect]
     Indication: ESSENTIAL THROMBOCYTHAEMIA
     Dosage: UNK UKN, UNK
     Route: 048
     Dates: start: 20000628, end: 20090602
  8. HYDROXYUREA [Suspect]
     Indication: ESSENTIAL THROMBOCYTHAEMIA
     Dosage: 500 MG, 1X/DAY:QD
     Route: 048
     Dates: start: 20091012, end: 20091102
  9. CITALOPRAM HYDROBROMIDE [Concomitant]
     Indication: DEPRESSION
     Dosage: 10 MG, 1X/DAY:QD
     Route: 048
     Dates: start: 20030127
  10. ASPIRIN AND DIPYRIDAMOLE [Suspect]
     Dosage: 1 DF, 2X/DAY:BID
     Route: 048
     Dates: start: 20030127, end: 20050301
  11. ACETYLSALICYLIC ACID SRT [Suspect]
     Indication: ESSENTIAL THROMBOCYTHAEMIA
     Dosage: 150 MG, 1X/DAY:QD
     Route: 048
     Dates: start: 20000628, end: 20030125
  12. ACETYLSALICYLIC ACID SRT [Suspect]
     Dosage: 75 MG, 1X/DAY:QD
     Route: 048
     Dates: start: 20091230, end: 20100708

REACTIONS (8)
  - CARDIOMEGALY [None]
  - EJECTION FRACTION DECREASED [None]
  - CARDIOMYOPATHY [None]
  - CARDIAC FAILURE [None]
  - MYELOFIBROSIS [None]
  - PERICARDIAL EFFUSION [None]
  - SEPSIS [None]
  - GENERAL PHYSICAL HEALTH DETERIORATION [None]
